FAERS Safety Report 4919920-4 (Version None)
Quarter: 2006Q1

REPORT INFORMATION
  Report Type: 
  Country: None (occurrence: None)
  Receive Date: 20060223
  Receipt Date: 20060213
  Transmission Date: 20060701
  Serious: Yes (Hospitalization)
  Sender: FDA-Public Use
  Company Number: JP-JNJFOC-20060203921

PATIENT
  Sex: Male
  Weight: 62.5 kg

DRUGS (9)
  1. REMICADE [Suspect]
  2. REMICADE [Suspect]
  3. REMICADE [Suspect]
  4. ASPARA K [Concomitant]
     Route: 048
  5. MYDRIN P [Concomitant]
     Route: 047
  6. MYDRIN P [Concomitant]
     Route: 047
  7. XALATAN [Concomitant]
     Route: 047
  8. TIMOPTIC [Concomitant]
     Route: 047
  9. DIAMOX [Concomitant]
     Route: 048

REACTIONS (2)
  - CONDITION AGGRAVATED [None]
  - GLAUCOMA [None]
